FAERS Safety Report 5848604-3 (Version None)
Quarter: 2008Q3

REPORT INFORMATION
  Report Type: 
  Country: None (occurrence: None)
  Receive Date: 20080815
  Receipt Date: 20080815
  Transmission Date: 20090109
  Serious: Yes (Hospitalization)
  Sender: FDA-Public Use
  Company Number: None

PATIENT
  Age: 73 Year
  Sex: Female
  Weight: 106 kg

DRUGS (2)
  1. BUMETANIDE [Suspect]
     Indication: DIURETIC THERAPY
     Dosage: 2 MG Q 12 HOURS IV
     Route: 042
     Dates: start: 20080802, end: 20080805
  2. BUMETANIDE [Suspect]
     Indication: RENAL TRANSPLANT
     Dosage: 2 MG Q 12 HOURS IV
     Route: 042
     Dates: start: 20080802, end: 20080805

REACTIONS (1)
  - WHEEZING [None]
